FAERS Safety Report 4515032-2 (Version None)
Quarter: 2004Q4

REPORT INFORMATION
  Report Type: 
  Country: None (occurrence: None)
  Receive Date: 20041129
  Receipt Date: 20041129
  Transmission Date: 20050328
  Serious: No
  Sender: FDA-Public Use
  Company Number: None

PATIENT
  Age: 31 Year
  Sex: Female
  Weight: 68.0396 kg

DRUGS (1)
  1. PAXIL [Suspect]
     Indication: DEPRESSION
     Dosage: 25MG  ONCE  ORAL
     Route: 048
     Dates: start: 20041116, end: 20041126

REACTIONS (8)
  - BRUXISM [None]
  - INSOMNIA [None]
  - MYDRIASIS [None]
  - NAUSEA [None]
  - PAIN IN JAW [None]
  - SENSORY LOSS [None]
  - SEXUAL DYSFUNCTION [None]
  - STRESS SYMPTOMS [None]
